FAERS Safety Report 18318115 (Version 3)
Quarter: 2020Q4

REPORT INFORMATION
  Report Type: Spontaneous
  Country: US (occurrence: US)
  Receive Date: 20200928
  Receipt Date: 20201026
  Transmission Date: 20210113
  Serious: No
  Sender: FDA-Public Use
  Company Number: US-PFIZER INC-2020369384

PATIENT
  Age: 44 Year
  Sex: Female

DRUGS (1)
  1. XELJANZ XR [Suspect]
     Active Substance: TOFACITINIB CITRATE
     Dosage: 11 MG
     Dates: start: 20200922

REACTIONS (6)
  - Arthralgia [Unknown]
  - Fall [Unknown]
  - Gait disturbance [Unknown]
  - Liver function test abnormal [Unknown]
  - Muscle spasms [Unknown]
  - Depression [Unknown]
